FAERS Safety Report 23247446 (Version 1)
Quarter: 2023Q4

REPORT INFORMATION
  Report Type: Spontaneous
  Country: CN (occurrence: None)
  Receive Date: 20231130
  Receipt Date: 20231130
  Transmission Date: 20240110
  Serious: Yes (Other)
  Sender: FDA-Public Use
  Company Number: 2023A269093

PATIENT
  Age: 29 Year
  Sex: Female

DRUGS (3)
  1. GEFITINIB [Suspect]
     Active Substance: GEFITINIB
     Indication: Non-small cell lung cancer stage IV
     Route: 048
  2. OSIMERTINIB [Suspect]
     Active Substance: OSIMERTINIB
     Indication: Non-small cell lung cancer stage IV
     Route: 048
  3. OSIMERTINIB [Suspect]
     Active Substance: OSIMERTINIB
     Indication: Non-small cell lung cancer stage IV
     Route: 048

REACTIONS (4)
  - Exposure during pregnancy [Unknown]
  - EGFR gene mutation [Unknown]
  - Malignant neoplasm progression [Recovered/Resolved]
  - Drug resistance [Unknown]
